FAERS Safety Report 10867335 (Version 1)
Quarter: 2015Q1

REPORT INFORMATION
  Report Type: Spontaneous
  Country: US (occurrence: US)
  Receive Date: 20150225
  Receipt Date: 20150225
  Transmission Date: 20150721
  Serious: Yes (Hospitalization)
  Sender: FDA-Public Use
  Company Number: US-BRISTOL-MYERS SQUIBB COMPANY-BMS-2015-009238

PATIENT
  Sex: Female

DRUGS (1)
  1. ABILIFY [Suspect]
     Active Substance: ARIPIPRAZOLE
     Indication: PRODUCT USED FOR UNKNOWN INDICATION
     Dosage: 10 MG, UNK
     Route: 048

REACTIONS (13)
  - Suicidal ideation [Unknown]
  - Abnormal behaviour [Unknown]
  - Panic attack [Unknown]
  - Ligament sprain [Unknown]
  - Viral infection [Unknown]
  - Irritability [Unknown]
  - Mania [Unknown]
  - Depression [Unknown]
  - Agitation [Unknown]
  - Insomnia [Unknown]
  - Anxiety [Unknown]
  - Aggression [Unknown]
  - Impulsive behaviour [Unknown]
